FAERS Safety Report 23188200 (Version 2)
Quarter: 2023Q4

REPORT INFORMATION
  Report Type: Report from Study
  Country: PT (occurrence: KR)
  Receive Date: 20231115
  Receipt Date: 20231116
  Transmission Date: 20240110
  Serious: Yes (Hospitalization, Other)
  Sender: FDA-Public Use
  Company Number: KR-BIAL-BIAL-15686

PATIENT

DRUGS (12)
  1. ESLICARBAZEPINE ACETATE [Suspect]
     Active Substance: ESLICARBAZEPINE ACETATE
     Indication: Epilepsy
     Dosage: 400 MILLIGRAM, QD
     Route: 048
     Dates: start: 20230713, end: 20230726
  2. ESLICARBAZEPINE ACETATE [Suspect]
     Active Substance: ESLICARBAZEPINE ACETATE
     Dosage: 800 MILLIGRAM, QD
     Route: 048
     Dates: start: 20230727, end: 20230813
  3. ESLICARBAZEPINE ACETATE [Suspect]
     Active Substance: ESLICARBAZEPINE ACETATE
     Dosage: 1200 MILLIGRAM, QD
     Route: 048
     Dates: start: 20230814
  4. TOPAMAX [Concomitant]
     Active Substance: TOPIRAMATE
     Indication: Epilepsy
     Dosage: 1 DOSAGE FORM, BID
     Route: 048
     Dates: start: 20230112
  5. TOPAMAX [Concomitant]
     Active Substance: TOPIRAMATE
     Dosage: 2 DOSAGE FORM, BID
     Route: 048
     Dates: start: 20230112
  6. EPILATAM [Concomitant]
     Indication: Epilepsy
     Dosage: 1 DOSAGE FORM, BID
     Route: 048
     Dates: start: 20230713
  7. EPILEPTOL CR [Concomitant]
     Indication: Epilepsy
     Dosage: 2 DOSAGE FORM, BID
     Route: 048
     Dates: start: 20230713, end: 20230726
  8. EPILEPTOL CR [Concomitant]
     Dosage: 1 DOSAGE FORM, BID
     Route: 048
     Dates: start: 20230727, end: 20230809
  9. FYCOMPA [Concomitant]
     Active Substance: PERAMPANEL
     Indication: Epilepsy
     Dosage: 1 DOSAGE FORM, QD
     Route: 048
     Dates: start: 20210104
  10. Griatin [Concomitant]
     Indication: Cognitive disorder
     Dosage: 1 DOSAGE FORM, BID
     Route: 048
     Dates: start: 20230112
  11. Argotin [Concomitant]
     Indication: Insomnia
     Dosage: 1 DOSAGE FORM, QD
     Route: 048
     Dates: start: 20230720
  12. TRAST [Concomitant]
     Indication: Unevaluable event
     Dosage: 1 DOSAGE FORM, QD
     Route: 062
     Dates: start: 20231018

REACTIONS (3)
  - Hypokalaemia [Recovered/Resolved]
  - Seizure [Recovered/Resolved]
  - Leukonychia [Recovering/Resolving]

NARRATIVE: CASE EVENT DATE: 20230824
